FAERS Safety Report 9368542 (Version 5)
Quarter: 2014Q1

REPORT INFORMATION
  Report Type: Report from Study
  Country: JP (occurrence: JP)
  Receive Date: 20130625
  Receipt Date: 20140131
  Transmission Date: 20141002
  Serious: Yes (Hospitalization)
  Sender: FDA-Public Use
  Company Number: JP-MERCK-1306JPN010709

PATIENT
  Age: 66 Year
  Sex: Male
  Weight: 58.5 kg

DRUGS (14)
  1. GLACTIV [Suspect]
     Indication: TYPE 2 DIABETES MELLITUS
     Dosage: 50 MG, ONCE A DAY
     Route: 048
     Dates: start: 20120502, end: 20121226
  2. GLACTIV [Suspect]
     Dosage: 50 MG, ONCE A DAY
     Route: 048
     Dates: start: 20130418
  3. GLACTIV [Suspect]
     Dosage: 50 MG, QD
     Route: 048
     Dates: start: 20120308, end: 2012
  4. KINEDAK [Concomitant]
     Route: 048
  5. OPALMON [Concomitant]
     Route: 048
  6. SEIBULE [Concomitant]
     Dosage: UNK
     Dates: end: 20121227
  7. SEIBULE [Concomitant]
     Dosage: UNK
     Dates: start: 20130418
  8. EXFORGE [Concomitant]
  9. MYSLEE [Concomitant]
  10. VITAMIN E NICOTINATE [Concomitant]
  11. PLAVIX [Concomitant]
  12. GLUBES [Concomitant]
     Dosage: UNK
     Dates: start: 20121227, end: 20130417
  13. CEFTRIAXONE SODIUM [Concomitant]
     Dosage: UNK
     Dates: start: 20120903, end: 20120909
  14. CEFTRIAXONE SODIUM [Concomitant]
     Dosage: UNK
     Dates: start: 20120910, end: 20120910

REACTIONS (3)
  - Pneumonia bacterial [Recovered/Resolved]
  - Tinea cruris [Recovered/Resolved]
  - Drug ineffective [Unknown]
